FAERS Safety Report 7208251-8 (Version None)
Quarter: 2010Q4

REPORT INFORMATION
  Report Type: 
  Country: None (occurrence: None)
  Receive Date: 20101126
  Receipt Date: 20100929
  Transmission Date: 20110411
  Serious: Yes (Hospitalization)
  Sender: FDA-Public Use
  Company Number: 312441

PATIENT
  Age: 44 Year
  Sex: Male
  Weight: 131.5 kg

DRUGS (27)
  1. VICTOZA [Suspect]
     Indication: TYPE 2 DIABETES MELLITUS
     Dosage: SUBCUTANEOUS
     Route: 058
     Dates: start: 20100525
  2. NOVOLOG [Concomitant]
  3. LANTUS [Concomitant]
  4. PANTOPRAZOLE /01263202/ (PANTOPRAZOLE SODIUM) [Concomitant]
  5. UROXATRAL [Concomitant]
  6. TIGAN [Concomitant]
  7. PENTASA [Concomitant]
  8. PLAVIX [Concomitant]
  9. ASPIRIN [Concomitant]
  10. TOPAMAX [Concomitant]
  11. PERCOCET [Concomitant]
  12. METHADONE /00068902/ (METHADONE HYDROCHLORIDE) [Concomitant]
  13. LOPID [Concomitant]
  14. NIASPAN [Concomitant]
  15. CIALIS [Concomitant]
  16. DIOVAN HCT [Concomitant]
  17. ZYRTEC-D 12 HOUR [Concomitant]
  18. ALBUTEROL /00139502/ (SALBUTAMOL SULFATE) [Concomitant]
  19. ATROVENT [Concomitant]
  20. HYCODAN /00060002/ (HYDROCODONE BITARTRATE) [Concomitant]
  21. SINGULAIR [Concomitant]
  22. LASIX [Concomitant]
  23. SPIRONOLACTONE [Concomitant]
  24. CLONOPIN [Concomitant]
  25. ROXICODONE [Concomitant]
  26. FENTANYL /00174602/ (FENTANYL CITRATE) [Concomitant]
  27. OXYCONTIN [Concomitant]

REACTIONS (2)
  - DISORIENTATION [None]
  - PANCREATITIS [None]
